FAERS Safety Report 13534754 (Version 1)
Quarter: 2017Q2

REPORT INFORMATION
  Report Type: Spontaneous
  Country: GB (occurrence: GB)
  Receive Date: 20170511
  Receipt Date: 20170511
  Transmission Date: 20170830
  Serious: Yes (Hospitalization)
  Sender: FDA-Public Use
  Company Number: GB-ROCHE-1932780

PATIENT
  Age: 55 Year
  Sex: Male

DRUGS (1)
  1. ROACTEMRA [Suspect]
     Active Substance: TOCILIZUMAB
     Indication: RHEUMATOID ARTHRITIS
     Dosage: STANDARD DOSE
     Route: 042
     Dates: start: 201509, end: 201703

REACTIONS (4)
  - Complement factor C4 decreased [Recovering/Resolving]
  - Cutaneous vasculitis [Recovering/Resolving]
  - Complement factor C3 decreased [Recovering/Resolving]
  - Rash [Recovering/Resolving]

NARRATIVE: CASE EVENT DATE: 201704
